FAERS Safety Report 9223999 (Version 1)
Quarter: 2013Q2

REPORT INFORMATION
  Report Type: Spontaneous
  Country: US (occurrence: US)
  Receive Date: 20130411
  Receipt Date: 20130411
  Transmission Date: 20140414
  Serious: No
  Sender: FDA-Public Use
  Company Number: US-BIOGENIDEC-2013BI031200

PATIENT
  Age: 48 Year
  Sex: Female

DRUGS (2)
  1. TYSABRI [Suspect]
     Indication: MULTIPLE SCLEROSIS
     Route: 042
     Dates: start: 20120809
  2. AVONEX [Concomitant]
     Indication: MULTIPLE SCLEROSIS
     Route: 030
     Dates: start: 20100901

REACTIONS (7)
  - Optic neuritis [Not Recovered/Not Resolved]
  - Onychoclasis [Recovered/Resolved]
  - Onychomalacia [Recovered/Resolved]
  - Musculoskeletal disorder [Recovered/Resolved]
  - Pain in extremity [Recovered/Resolved]
  - Onychomadesis [Recovered/Resolved]
  - Alopecia [Recovered/Resolved]
